FAERS Safety Report 5810906-4 (Version None)
Quarter: 2008Q3

REPORT INFORMATION
  Report Type: 
  Country: None (occurrence: None)
  Receive Date: 20080716
  Receipt Date: 20080704
  Transmission Date: 20090109
  Serious: Yes (Hospitalization, Other)
  Sender: FDA-Public Use
  Company Number: PHHY2008CH11301

PATIENT
  Sex: Male

DRUGS (11)
  1. TOBI [Suspect]
     Indication: BRONCHIECTASIS
     Dosage: UNK
     Dates: start: 20080520, end: 20080522
  2. TOBI [Suspect]
     Indication: CHRONIC OBSTRUCTIVE PULMONARY DISEASE
  3. SPIRIVA [Concomitant]
  4. SYMBICORT TURBUHALER ^DRACO^ [Concomitant]
  5. TOREM [Concomitant]
  6. ZITHROMAX [Concomitant]
  7. ACETYLCYSTEINE [Concomitant]
  8. ASPIRIN [Concomitant]
  9. DOSPIR [Concomitant]
  10. SERETIDE [Concomitant]
  11. NEXIUM [Concomitant]

REACTIONS (2)
  - BRONCHOSPASM [None]
  - EOSINOPHILIA [None]
